FAERS Safety Report 23520121 (Version 2)
Quarter: 2024Q1

REPORT INFORMATION
  Report Type: Report from Study
  Country: BR (occurrence: BR)
  Receive Date: 20240214
  Receipt Date: 20240215
  Transmission Date: 20240409
  Serious: Yes (Hospitalization, Other)
  Sender: FDA-Public Use
  Company Number: BR-ABBVIE-5633372

PATIENT
  Sex: Male
  Weight: 79 kg

DRUGS (4)
  1. HUMIRA [Suspect]
     Active Substance: ADALIMUMAB
     Indication: Psoriasis
     Route: 058
     Dates: end: 2014
  2. GENFIBROZILA [Concomitant]
     Indication: Product used for unknown indication
     Dosage: FORM STRENGTH: 600 MILLIGRAM
  3. METFORMIN [Concomitant]
     Active Substance: METFORMIN HYDROCHLORIDE
     Indication: Diabetes mellitus
     Dosage: FORM STRENGTH: 500 MILLIGRAM
  4. BENICAR [Concomitant]
     Active Substance: OLMESARTAN MEDOXOMIL
     Indication: Blood pressure measurement
     Dosage: 40/25

REACTIONS (17)
  - Malaise [Recovered/Resolved]
  - Heart rate decreased [Recovered/Resolved]
  - Nasal congestion [Unknown]
  - Abdominal pain [Recovered/Resolved]
  - Nephrolithiasis [Not Recovered/Not Resolved]
  - Blood urine present [Unknown]
  - Medical device site pain [Unknown]
  - Rhinitis allergic [Unknown]
  - Anxiety [Recovered/Resolved]
  - Platelet count decreased [Unknown]
  - Mobility decreased [Not Recovered/Not Resolved]
  - Chest discomfort [Recovered/Resolved]
  - Influenza [Unknown]
  - Hypotension [Recovered/Resolved]
  - Discomfort [Recovered/Resolved]
  - Dyspnoea [Recovered/Resolved]
  - HIV infection [Unknown]

NARRATIVE: CASE EVENT DATE: 20210101
